FAERS Safety Report 7951313-8 (Version None)
Quarter: 2011Q4

REPORT INFORMATION
  Report Type: 
  Country: None (occurrence: None)
  Receive Date: 20111201
  Receipt Date: 20111116
  Transmission Date: 20120403
  Serious: Yes (Other)
  Sender: FDA-Public Use
  Company Number: GB-ASTELLAS-2011EU002432

PATIENT
  Sex: Female
  Weight: 26 kg

DRUGS (7)
  1. DERMOL SOL [Concomitant]
     Dosage: UNK
     Route: 061
     Dates: start: 20060105
  2. TACROLIMUS [Suspect]
     Indication: DERMATITIS ATOPIC
     Dosage: 0.03 %, UID/QD
     Route: 061
     Dates: start: 20050208
  3. OILATUM [Concomitant]
     Indication: DERMATITIS ATOPIC
     Dosage: UNK
     Route: 061
     Dates: start: 20050106
  4. TACROLIMUS [Suspect]
     Dosage: 0.03 %, BID
     Route: 061
     Dates: start: 20050208
  5. DERMOL SOL [Concomitant]
     Indication: DERMATITIS ATOPIC
     Dosage: UNK
     Route: 061
     Dates: start: 20030730
  6. EMULSIFYING [Concomitant]
     Indication: DERMATITIS ATOPIC
     Dosage: UNK
     Route: 061
     Dates: start: 20041124
  7. LOCOID C [Concomitant]
     Indication: DERMATITIS ATOPIC
     Dosage: UNK
     Route: 061
     Dates: start: 20050607

REACTIONS (1)
  - LYMPHADENOPATHY [None]
